FAERS Safety Report 21878798 (Version 7)
Quarter: 2023Q4

REPORT INFORMATION
  Report Type: Spontaneous
  Country: US (occurrence: US)
  Receive Date: 20230118
  Receipt Date: 20231114
  Transmission Date: 20240110
  Serious: Yes (Death, Hospitalization)
  Sender: FDA-Public Use
  Company Number: US-PFIZER INC-PV202300010828

PATIENT
  Age: 80 Year
  Sex: Female

DRUGS (1)
  1. LORBRENA [Suspect]
     Active Substance: LORLATINIB
     Indication: Lung neoplasm malignant
     Dosage: 100 MG, DAILY
     Route: 048

REACTIONS (6)
  - Neoplasm progression [Fatal]
  - Aggression [Unknown]
  - Screaming [Unknown]
  - Fall [Unknown]
  - Dyspnoea [Unknown]
  - Extra dose administered [Unknown]
